FAERS Safety Report 6143502-2 (Version None)
Quarter: 2009Q2

REPORT INFORMATION
  Report Type: 
  Country: None (occurrence: None)
  Receive Date: 20090401
  Receipt Date: 20090323
  Transmission Date: 20091009
  Serious: Yes (Death, Hospitalization, Other)
  Sender: FDA-Public Use
  Company Number: 1-17913111

PATIENT
  Sex: Female

DRUGS (3)
  1. WARFARIN SODIUM [Suspect]
     Indication: ATRIAL FIBRILLATION
     Dosage: ORAL
     Route: 048
  2. LOVENOX [Suspect]
     Indication: ANTICOAGULANT THERAPY
  3. LOVENOX [Suspect]
     Indication: POSTOPERATIVE CARE

REACTIONS (6)
  - BLOOD PRESSURE DIASTOLIC DECREASED [None]
  - CARDIO-RESPIRATORY ARREST [None]
  - COMPARTMENT SYNDROME [None]
  - FALL [None]
  - INTERNATIONAL NORMALISED RATIO INCREASED [None]
  - MUSCLE HAEMORRHAGE [None]
